FAERS Safety Report 8012543 (Version 3)
Quarter: 2012Q4

REPORT INFORMATION
  Report Type: 
  Country: US (occurrence: US)
  Receive Date: 20110628
  Receipt Date: 20120913
  Transmission Date: 20130627
  Serious: Yes (Hospitalization, Other)
  Sender: FDA-Public Use
  Company Number: US-BAYER-2011-052221

PATIENT
  Age: 44 Year
  Sex: Female
  Weight: 70.3 kg

DRUGS (4)
  1. YAZ [Suspect]
     Indication: CONTRACEPTION
     Dosage: UNK
     Route: 048
     Dates: start: 200809, end: 200902
  2. LEXAPRO [Concomitant]
  3. AMBIEN [Concomitant]
  4. ZOLPIDEM [Concomitant]

REACTIONS (5)
  - Transient ischaemic attack [None]
  - Cholecystectomy [None]
  - Pain [None]
  - Anxiety [None]
  - Depression [None]
